FAERS Safety Report 22058104 (Version 3)
Quarter: 2024Q2

REPORT INFORMATION
  Report Type: Spontaneous
  Country: IT (occurrence: None)
  Receive Date: 20230303
  Receipt Date: 20240404
  Transmission Date: 20240716
  Serious: Yes (Death)
  Sender: FDA-Public Use
  Company Number: IT-ROCHE-3295661

PATIENT
  Age: 52 Year
  Sex: Male

DRUGS (1)
  1. TOCILIZUMAB [Suspect]
     Active Substance: TOCILIZUMAB
     Indication: Product used for unknown indication
     Route: 065

REACTIONS (6)
  - COVID-19 [Fatal]
  - Acinetobacter infection [Fatal]
  - Pneumonia klebsiella [Fatal]
  - Pneumothorax [Fatal]
  - Subcutaneous emphysema [Fatal]
  - Vascular device infection [Fatal]
